FAERS Safety Report 7655373-3 (Version None)
Quarter: 2011Q3

REPORT INFORMATION
  Report Type: 
  Country: None (occurrence: None)
  Receive Date: 20110729
  Receipt Date: 20110714
  Transmission Date: 20111222
  Serious: Yes (Hospitalization)
  Sender: FDA-Public Use
  Company Number: TPA2011A04039

PATIENT
  Age: 65 Year
  Sex: Male

DRUGS (11)
  1. BETA BLOCKER (BETA BLOCKING AGENTS) [Concomitant]
  2. PIOGLITAZONE HYDROCHLORIDE [Suspect]
     Indication: TYPE 2 DIABETES MELLITUS
     Dates: start: 20100520, end: 20100520
  3. SILDENAFIL CITRATE [Concomitant]
  4. BRONCHO-DILATOR (BETA BLOCKING AGENTS AND VASODILATORS) [Concomitant]
  5. VITAMIN D [Suspect]
     Dates: start: 20100520
  6. HERB/SUPPLEMENT/VITAMIN (VITAMINS NOS, MINERALS NOS, HERBAL NOS) [Concomitant]
  7. CORTICOSTEROIDS (CORTICOSTEROIDS) [Concomitant]
  8. TADALAFIL [Concomitant]
  9. VARDENAFIL (VARDENAFIL) [Concomitant]
  10. ANTI-DIABETICS (DRUG USED IN DIABETES) [Concomitant]
  11. CA_+ CHANNEL BLOCKER (CALCIUM CHANNEL BLOCKERS) [Concomitant]

REACTIONS (1)
  - CROHN'S DISEASE [None]
